FAERS Safety Report 5073208-2 (Version None)
Quarter: 2006Q3

REPORT INFORMATION
  Report Type: 
  Country: None (occurrence: None)
  Receive Date: 20060710
  Receipt Date: 20060531
  Transmission Date: 20061208
  Serious: No
  Sender: FDA-Public Use
  Company Number: 2006US000653

PATIENT
  Sex: Female

DRUGS (4)
  1. MYCAMINE [Suspect]
     Indication: WOUND INFECTION PSEUDOMONAS
     Dosage: 50 MG UID/QD, IV NOS
     Route: 042
     Dates: start: 20060307, end: 20060314
  2. CIPRO [Concomitant]
  3. ROCEPHIN (CETRIAZONE SODIUM) [Concomitant]
  4. CIPRO [Concomitant]

REACTIONS (1)
  - BLOOD CREATININE INCREASED [None]
